FAERS Safety Report 9482804 (Version 1)
Quarter: 2013Q3

REPORT INFORMATION
  Report Type: Spontaneous
  Country: FR (occurrence: FR)
  Receive Date: 20130828
  Receipt Date: 20130828
  Transmission Date: 20140515
  Serious: Yes (Hospitalization, Other)
  Sender: FDA-Public Use
  Company Number: FR-PFIZER INC-2013244723

PATIENT
  Age: 23 Year
  Sex: Female

DRUGS (1)
  1. EFFEXOR [Suspect]
     Indication: DEPRESSION
     Dosage: 37.5 MG, 1 TABLET ONCE DAILY
     Route: 048
     Dates: start: 200807, end: 20090103

REACTIONS (4)
  - Mania [Recovered/Resolved]
  - Hypertonia [Recovered/Resolved]
  - Palpitations [Recovered/Resolved]
  - Bipolar disorder [Unknown]
